FAERS Safety Report 21605920 (Version 1)
Quarter: 2022Q4

REPORT INFORMATION
  Report Type: Spontaneous
  Country: CN (occurrence: CN)
  Receive Date: 20221116
  Receipt Date: 20221116
  Transmission Date: 20230113
  Serious: Yes (Other)
  Sender: FDA-Public Use
  Company Number: CN-UCBSA-2022064947

PATIENT
  Sex: Female
  Weight: 40 kg

DRUGS (3)
  1. KEPPRA [Suspect]
     Active Substance: LEVETIRACETAM
     Indication: Seizure prophylaxis
     Dosage: 0.500 GRAM, 2X/DAY (BID)
     Dates: start: 20221015, end: 20221028
  2. KEPPRA [Suspect]
     Active Substance: LEVETIRACETAM
     Indication: Off label use
  3. MINIRIN [Suspect]
     Active Substance: DESMOPRESSIN ACETATE
     Indication: Diabetes insipidus
     Dosage: 0.100 MILLIGRAM, 3X/DAY (TID)
     Dates: start: 20221026, end: 20221028

REACTIONS (3)
  - Hyponatraemia [Unknown]
  - Diabetes insipidus [Unknown]
  - Off label use [Unknown]

NARRATIVE: CASE EVENT DATE: 20221015
